FAERS Safety Report 23809083 (Version 1)
Quarter: 2024Q2

REPORT INFORMATION
  Report Type: Spontaneous
  Country: FR (occurrence: None)
  Receive Date: 20240502
  Receipt Date: 20240502
  Transmission Date: 20240716
  Serious: Yes (Other)
  Sender: FDA-Public Use
  Company Number: 2024A090916

PATIENT
  Age: 41 Year
  Sex: Male

DRUGS (4)
  1. QUETIAPINE [Suspect]
     Active Substance: QUETIAPINE
     Indication: Schizophrenia
     Dosage: 1200 MG PER EPISODE
  2. MIDOMAFETAMINE [Suspect]
     Active Substance: MIDOMAFETAMINE
  3. HEROIN [Suspect]
     Active Substance: DIAMORPHINE
  4. COCAINE [Suspect]
     Active Substance: COCAINE
     Dosage: 3.5G ON THE EPISODE

REACTIONS (2)
  - Drug use disorder [Unknown]
  - Toxicity to various agents [Unknown]

NARRATIVE: CASE EVENT DATE: 20240301
